FAERS Safety Report 18524278 (Version 3)
Quarter: 2020Q4

REPORT INFORMATION
  Report Type: Report from Study
  Country: US (occurrence: US)
  Receive Date: 20201119
  Receipt Date: 20201222
  Transmission Date: 20210114
  Serious: Yes (Hospitalization, Other)
  Sender: FDA-Public Use
  Company Number: US-BRISTOL-MYERS SQUIBB COMPANY-BMS-2020-097330

PATIENT
  Age: 69 Year
  Sex: Male
  Weight: 82.6 kg

DRUGS (2)
  1. NIVOLUMAB [Suspect]
     Active Substance: NIVOLUMAB
     Indication: NON-SMALL CELL LUNG CANCER
     Dosage: 240 UNIT NOT SPECIFIED
     Route: 065
     Dates: start: 20200729, end: 20201209
  2. IPILIMUMAB [Suspect]
     Active Substance: IPILIMUMAB
     Indication: NON-SMALL CELL LUNG CANCER
     Dosage: 72 UNIT NOT SPECIFIED
     Route: 065
     Dates: start: 20200729, end: 20201209

REACTIONS (4)
  - Colitis [Recovered/Resolved]
  - Dehydration [Not Recovered/Not Resolved]
  - Pneumonia [Unknown]
  - Diverticulitis [Unknown]

NARRATIVE: CASE EVENT DATE: 20201113
